FAERS Safety Report 16338838 (Version 1)
Quarter: 2019Q2

REPORT INFORMATION
  Report Type: Spontaneous
  Country: IT (occurrence: IT)
  Receive Date: 20190521
  Receipt Date: 20190521
  Transmission Date: 20190711
  Serious: Yes (Hospitalization)
  Sender: FDA-Public Use
  Company Number: IT-TEVA-2019-IT-1051639

PATIENT
  Age: 54 Year
  Sex: Male

DRUGS (1)
  1. LOSARTAN. [Suspect]
     Active Substance: LOSARTAN
     Indication: HYPERTENSION
     Route: 048
     Dates: end: 20190313

REACTIONS (2)
  - Therapy non-responder [Recovering/Resolving]
  - Hypertension [Recovering/Resolving]

NARRATIVE: CASE EVENT DATE: 20190312
